FAERS Safety Report 9409729 (Version 1)
Quarter: 2013Q3

REPORT INFORMATION
  Report Type: Spontaneous
  Country: JP (occurrence: JP)
  Receive Date: 20130719
  Receipt Date: 20130719
  Transmission Date: 20140515
  Serious: Yes (Death, Other)
  Sender: FDA-Public Use
  Company Number: PHHY2013JP076596

PATIENT
  Age: 79 Year
  Sex: Male

DRUGS (1)
  1. CARBAMAZEPINE [Suspect]
     Indication: NEURALGIA

REACTIONS (4)
  - Acute respiratory distress syndrome [Fatal]
  - Cholangitis acute [Unknown]
  - Drug reaction with eosinophilia and systemic symptoms [Unknown]
  - Pneumocystis jirovecii pneumonia [Unknown]
